FAERS Safety Report 7945178-8 (Version None)
Quarter: 2011Q4

REPORT INFORMATION
  Report Type: 
  Country: None (occurrence: None)
  Receive Date: 20111129
  Receipt Date: 20111122
  Transmission Date: 20120403
  Serious: Yes (Other)
  Sender: FDA-Public Use
  Company Number: FR-UCBSA-046363

PATIENT
  Age: 47 Year
  Sex: Male
  Weight: 90 kg

DRUGS (10)
  1. BUPRENORPHINE [Concomitant]
  2. VIMPAT [Suspect]
     Indication: EPILEPSY
     Dosage: 50 MG
     Route: 048
     Dates: start: 20111110, end: 20111101
  3. GLUCOPHAGE [Concomitant]
  4. TRIMEPRAZINE TARTRATE [Concomitant]
     Dosage: 60 ORAL DROPS AT NIGHT
     Route: 048
  5. FENOFIBRATE [Concomitant]
     Dosage: 200 MG
  6. EFFEXOR XR [Concomitant]
     Dosage: 150+75 MG
  7. MORPHINE [Concomitant]
  8. NEBIVOLOL HCL [Concomitant]
     Dosage: 5 MG
  9. ALLOPURINOL [Concomitant]
  10. ZYPREXA [Concomitant]

REACTIONS (1)
  - URINARY RETENTION [None]
